FAERS Safety Report 15617166 (Version 1)
Quarter: 2018Q4

REPORT INFORMATION
  Report Type: Spontaneous
  Country: US (occurrence: US)
  Receive Date: 20181114
  Receipt Date: 20181114
  Transmission Date: 20190205
  Serious: Yes (Hospitalization)
  Sender: FDA-Public Use
  Company Number: None

PATIENT
  Sex: Male

DRUGS (13)
  1. HUMALOG [Concomitant]
     Active Substance: INSULIN LISPRO
  2. TAMIFLU [Concomitant]
     Active Substance: OSELTAMIVIR PHOSPHATE
  3. FINACEA [Concomitant]
     Active Substance: AZELAIC ACID
  4. CEROVITE [Concomitant]
     Active Substance: FOLIC ACID\IRON
  5. COLESTIPOL [Concomitant]
     Active Substance: COLESTIPOL
  6. GENTAMICIN. [Concomitant]
     Active Substance: GENTAMICIN
  7. BACTRIM [Concomitant]
     Active Substance: SULFAMETHOXAZOLE\TRIMETHOPRIM
  8. SIMVASTATIN. [Concomitant]
     Active Substance: SIMVASTATIN
  9. DALFAMPRIDINE. [Suspect]
     Active Substance: DALFAMPRIDINE
     Indication: MULTIPLE SCLEROSIS
     Route: 048
     Dates: start: 20181003
  10. VITAMIN B12 [Concomitant]
     Active Substance: CYANOCOBALAMIN
  11. VITAMIN D3 [Concomitant]
     Active Substance: CHOLECALCIFEROL
  12. BACLOFEN. [Concomitant]
     Active Substance: BACLOFEN
  13. MAGNESIUM [Concomitant]
     Active Substance: MAGNESIUM

REACTIONS (3)
  - Hemiparesis [None]
  - Product dose omission [None]
  - Gait disturbance [None]
